FAERS Safety Report 7725866-9 (Version None)
Quarter: 2011Q3

REPORT INFORMATION
  Report Type: 
  Country: None (occurrence: None)
  Receive Date: 20110902
  Receipt Date: 20110819
  Transmission Date: 20111222
  Serious: Yes (Hospitalization, Other)
  Sender: FDA-Public Use
  Company Number: CA-PAR PHARMACEUTICAL, INC-2011SCPR003196

PATIENT

DRUGS (14)
  1. DOMPERIDONE [Concomitant]
     Indication: PRODUCT USED FOR UNKNOWN INDICATION
     Dosage: 10 MG, QID
     Route: 065
  2. FUROSEMIDE [Concomitant]
     Indication: PRODUCT USED FOR UNKNOWN INDICATION
     Dosage: 40 MG, BID
     Route: 065
  3. ATORVASTATIN [Concomitant]
     Indication: PRODUCT USED FOR UNKNOWN INDICATION
     Dosage: 20 MG, DAILY
     Route: 065
  4. WARFARIN SODIUM [Concomitant]
     Indication: PRODUCT USED FOR UNKNOWN INDICATION
     Dosage: 2 MG, DAILY
     Route: 065
  5. PAROXETINE HCL [Suspect]
     Indication: PRODUCT USED FOR UNKNOWN INDICATION
     Dosage: 20 MG, DAILY
     Route: 065
  6. MIRTAZAPINE [Suspect]
     Indication: PARANOIA
     Dosage: 15 MG, DAILY
     Route: 065
  7. HALOPERIDOL [Concomitant]
     Indication: PARANOIA
     Dosage: 2 MG, BID
     Route: 065
  8. MOXIFLOXACIN [Concomitant]
     Indication: PNEUMONIA
     Dosage: 400 MG, DAILY
     Route: 065
  9. OXYCODONE HCL [Concomitant]
     Indication: PRODUCT USED FOR UNKNOWN INDICATION
     Dosage: 5 MG, BID
     Route: 065
  10. IMIPRAMINE [Suspect]
     Indication: PRODUCT USED FOR UNKNOWN INDICATION
     Dosage: 25 MG, DAILY
     Route: 065
  11. TRAZODONE HCL [Concomitant]
     Indication: PRODUCT USED FOR UNKNOWN INDICATION
     Dosage: 50 MG, DAILY
     Route: 065
  12. MELOXICAM [Concomitant]
     Indication: PRODUCT USED FOR UNKNOWN INDICATION
     Dosage: 15 MG, DAILY
     Route: 065
  13. TRAMADOL HYDROCHLORIDE [Concomitant]
     Indication: PRODUCT USED FOR UNKNOWN INDICATION
     Dosage: 37.5 MG, TID
     Route: 065
  14. AMLODIPINE [Concomitant]
     Indication: PRODUCT USED FOR UNKNOWN INDICATION
     Dosage: 10 MG, DAILY
     Route: 065

REACTIONS (17)
  - BLOOD UREA INCREASED [None]
  - PNEUMONIA [None]
  - BLOOD CALCIUM DECREASED [None]
  - BLOOD CREATINE PHOSPHOKINASE INCREASED [None]
  - DEMYELINATION [None]
  - CEREBRAL ISCHAEMIA [None]
  - WHITE BLOOD CELL COUNT INCREASED [None]
  - BLOOD CREATININE INCREASED [None]
  - BLOOD ALBUMIN DECREASED [None]
  - ANION GAP INCREASED [None]
  - CIRCADIAN RHYTHM SLEEP DISORDER [None]
  - SEROTONIN SYNDROME [None]
  - HYPOPHAGIA [None]
  - BLOOD URINE PRESENT [None]
  - URINE KETONE BODY PRESENT [None]
  - MOBILITY DECREASED [None]
  - BLOOD MAGNESIUM DECREASED [None]
